FAERS Safety Report 10012941 (Version 2)
Quarter: 2014Q1

REPORT INFORMATION
  Report Type: Spontaneous
  Country: US (occurrence: US)
  Receive Date: 20140314
  Receipt Date: 20140314
  Transmission Date: 20141002
  Serious: Yes (Hospitalization, Other)
  Sender: FDA-Public Use
  Company Number: US-ABBVIE-14P-163-1204295-00

PATIENT
  Age: 20 Year
  Sex: Male
  Weight: 81.72 kg

DRUGS (4)
  1. HUMIRA [Suspect]
     Indication: PSORIASIS
     Dosage: INITIAL DOSE
     Dates: start: 20130104, end: 20130104
  2. HUMIRA [Suspect]
  3. CLOBEX CREAM [Concomitant]
     Indication: PSORIASIS
  4. SOLODYN [Concomitant]
     Indication: ACNE

REACTIONS (5)
  - Lipase increased [Recovered/Resolved]
  - Hypophagia [Recovered/Resolved]
  - Pancreatitis [Recovered/Resolved]
  - Abdominal pain upper [Recovered/Resolved]
  - Vomiting [Recovered/Resolved]
